FAERS Safety Report 6274926-0 (Version None)
Quarter: 2009Q3

REPORT INFORMATION
  Report Type: 
  Country: None (occurrence: None)
  Receive Date: 20090721
  Receipt Date: 20090707
  Transmission Date: 20100115
  Serious: Yes (Hospitalization, Other)
  Sender: FDA-Public Use
  Company Number: JAUSA660

PATIENT
  Age: 55 Year
  Sex: Male
  Weight: 79.38 kg

DRUGS (1)
  1. NIZORAL [Suspect]
     Indication: TINEA VERSICOLOUR
     Route: 048
     Dates: start: 19830826, end: 19830921

REACTIONS (9)
  - FAECES DISCOLOURED [None]
  - FATIGUE [None]
  - HEADACHE [None]
  - HEPATITIS CHOLESTATIC [None]
  - JAUNDICE [None]
  - MALAISE [None]
  - MYALGIA [None]
  - PRURITUS [None]
  - URINE ANALYSIS ABNORMAL [None]
